FAERS Safety Report 7492441-3 (Version None)
Quarter: 2011Q1

REPORT INFORMATION
  Report Type: 
  Country: None (occurrence: None)
  Receive Date: 20110318
  Receipt Date: 20100305
  Transmission Date: 20110831
  Serious: Yes (Life-Threatening)
  Sender: FDA-Public Use
  Company Number: 2010SP014527

PATIENT
  Age: 55 Year
  Sex: Female

DRUGS (5)
  1. PEG-INTRON [Suspect]
  2. PEG-INTRON [Concomitant]
  3. REBETOL [Suspect]
     Indication: HEPATITIS C
  4. PEG-INTRON [Suspect]
     Indication: HEPATITIS C
     Dosage: 120 MCG; QW; SC
     Route: 058
     Dates: start: 20091029, end: 20091201
  5. PEG-INTRON [Suspect]

REACTIONS (1)
  - CEREBROVASCULAR ACCIDENT [None]
